FAERS Safety Report 6050968-5 (Version None)
Quarter: 2009Q1

REPORT INFORMATION
  Report Type: 
  Country: None (occurrence: None)
  Receive Date: 20090121
  Receipt Date: 20090107
  Transmission Date: 20090719
  Serious: Yes (Life-Threatening, Other)
  Sender: FDA-Public Use
  Company Number: MPS1-1000158

PATIENT
  Age: 18 Month
  Sex: Male
  Weight: 9.3 kg

DRUGS (1)
  1. ALDURAZYME [Suspect]
     Indication: MUCOPOLYSACCHARIDOSIS I
     Dosage: 5.8 MG, QW, INTRAVENOUS
     Route: 042
     Dates: start: 20081114

REACTIONS (7)
  - ANAPHYLACTIC REACTION [None]
  - ANAPHYLACTOID REACTION [None]
  - FLUSHING [None]
  - HYPOTENSION [None]
  - INFUSION RELATED REACTION [None]
  - RESPIRATORY ARREST [None]
  - RESPIRATORY DISTRESS [None]
